FAERS Safety Report 6809520-3 (Version None)
Quarter: 2010Q2

REPORT INFORMATION
  Report Type: 
  Country: None (occurrence: None)
  Receive Date: 20100630
  Receipt Date: 20100615
  Transmission Date: 20101027
  Serious: Yes (Hospitalization)
  Sender: FDA-Public Use
  Company Number: PHHY2010MX39518

PATIENT
  Age: 34 Year
  Sex: Female

DRUGS (3)
  1. DIOVAN [Suspect]
     Indication: HYPERTENSION
     Dosage: 1 TABLET DAILY
     Route: 048
     Dates: start: 20100601
  2. ASPIRIN [Concomitant]
     Dosage: 1 TABLET/DAY
  3. VONTROL [Concomitant]
     Dosage: 2 TABLETS /DAY

REACTIONS (1)
  - HERNIA REPAIR [None]
